FAERS Safety Report 5797140-1 (Version None)
Quarter: 2008Q3

REPORT INFORMATION
  Report Type: 
  Country: None (occurrence: None)
  Receive Date: 20080701
  Receipt Date: 20080620
  Transmission Date: 20090109
  Serious: Yes (Other)
  Sender: FDA-Public Use
  Company Number: PHHY2008FR11761

PATIENT
  Age: 70 Year
  Sex: Male

DRUGS (2)
  1. TRILEPTAL [Suspect]
     Indication: HERPES ZOSTER
     Dosage: 2400MG/DAY
  2. TRILEPTAL [Suspect]
     Dosage: 900MG/DAY

REACTIONS (2)
  - PARKINSONISM [None]
  - TREMOR [None]
